FAERS Safety Report 10754240 (Version 1)
Quarter: 2015Q1

REPORT INFORMATION
  Report Type: Spontaneous
  Country: US (occurrence: US)
  Receive Date: 20150202
  Receipt Date: 20150202
  Transmission Date: 20150721
  Serious: Yes (Other)
  Sender: FDA-Public Use
  Company Number: US-ROCHE-1520503

PATIENT
  Sex: Female

DRUGS (1)
  1. AVASTIN [Suspect]
     Active Substance: BEVACIZUMAB
     Indication: AGE-RELATED MACULAR DEGENERATION
     Dosage: 25 MG/ML
     Route: 065

REACTIONS (5)
  - Endophthalmitis [Unknown]
  - Retinal detachment [Unknown]
  - Vitreous floaters [Unknown]
  - Suspected transmission of an infectious agent via product [Unknown]
  - Blindness [Unknown]
